FAERS Safety Report 6258311-3 (Version None)
Quarter: 2009Q3

REPORT INFORMATION
  Report Type: 
  Country: None (occurrence: None)
  Receive Date: 20090702
  Receipt Date: 20090702
  Transmission Date: 20100115
  Serious: No
  Sender: FDA-Public Use
  Company Number: None

PATIENT
  Age: 48 Year
  Sex: Female
  Weight: 79.3795 kg

DRUGS (1)
  1. EFFEXOR XR [Suspect]
     Indication: MENOPAUSE
     Dosage: 75 MG DAILY

REACTIONS (1)
  - RASH GENERALISED [None]
